FAERS Safety Report 7170795-5 (Version None)
Quarter: 2010Q4

REPORT INFORMATION
  Report Type: 
  Country: None (occurrence: None)
  Receive Date: 20101214
  Receipt Date: 20101214
  Transmission Date: 20110411
  Serious: No
  Sender: FDA-Public Use
  Company Number: None

PATIENT
  Age: 88 Year
  Sex: Male
  Weight: 76.66 kg

DRUGS (1)
  1. MICAFUNGIN [Suspect]
     Indication: SYSTEMIC CANDIDA
     Dosage: 100 MG EVERY DAY IV
     Route: 042
     Dates: start: 20100908, end: 20100911

REACTIONS (1)
  - HEPATIC ENZYME INCREASED [None]
